FAERS Safety Report 13329941 (Version 3)
Quarter: 2017Q2

REPORT INFORMATION
  Report Type: Spontaneous
  Country: CA (occurrence: CA)
  Receive Date: 20170313
  Receipt Date: 20170418
  Transmission Date: 20170830
  Serious: Yes (Other)
  Sender: FDA-Public Use
  Company Number: CA-BAUSCH-BL-2017-005856

PATIENT
  Age: 82 Year
  Sex: Male
  Weight: 79.45 kg

DRUGS (1)
  1. EFUDEX [Suspect]
     Active Substance: FLUOROURACIL
     Indication: SKIN LESION
     Route: 061
     Dates: start: 20170224, end: 20170309

REACTIONS (3)
  - Application site haemorrhage [Recovering/Resolving]
  - Application site erythema [Recovered/Resolved]
  - Application site swelling [Recovered/Resolved]

NARRATIVE: CASE EVENT DATE: 20170303
